FAERS Safety Report 13292118 (Version 2)
Quarter: 2017Q1

REPORT INFORMATION
  Report Type: Spontaneous
  Country: US (occurrence: US)
  Receive Date: 20170303
  Receipt Date: 20170306
  Transmission Date: 20170428
  Serious: No
  Sender: FDA-Public Use
  Company Number: US-PFIZER INC-2017091817

PATIENT
  Age: 61 Year
  Sex: Female
  Weight: 102 kg

DRUGS (20)
  1. METFORMIN [Concomitant]
     Active Substance: METFORMIN HYDROCHLORIDE
     Indication: DIABETES MELLITUS
     Dosage: 1000 MG, 2X/DAY
     Dates: start: 2002
  2. MILK THISTLE [Concomitant]
     Active Substance: MILK THISTLE
     Indication: HEPATIC STEATOSIS
     Dosage: 2 DF, 1X/DAY
     Dates: start: 2006
  3. METHOTREXATE SODIUM. [Suspect]
     Active Substance: METHOTREXATE SODIUM
     Dosage: 15 MG (6 X 2.5 MG), WEEKLY
  4. XELJANZ XR [Concomitant]
     Active Substance: TOFACITINIB CITRATE
     Dosage: 11 MG, 1X/DAY
     Dates: start: 201609
  5. FERROUS SULFATE. [Concomitant]
     Active Substance: FERROUS SULFATE
     Indication: BLOOD IRON DECREASED
     Dosage: 325 MG, 3X/DAY
     Dates: start: 201609
  6. B COMPLEX (B50) [Concomitant]
     Dosage: UNK, 1X/DAY
     Dates: start: 201601
  7. BACLOFEN. [Concomitant]
     Active Substance: BACLOFEN
     Dosage: UNK, AS NEEDED
  8. LYRICA [Suspect]
     Active Substance: PREGABALIN
     Indication: FIBROMYALGIA
     Dosage: 225 MG, 1X/DAY AT BEDTIME
  9. TRAZODONE [Suspect]
     Active Substance: TRAZODONE HYDROCHLORIDE
     Dosage: 50 MG, 3X/DAY
  10. TRULICITY [Concomitant]
     Active Substance: DULAGLUTIDE
     Indication: DIABETES MELLITUS
     Dosage: 1.5 MG, WEEKLY
     Dates: start: 2016
  11. GARLIC /01570501/ [Concomitant]
     Active Substance: GARLIC
     Indication: ROUTINE HEALTH MAINTENANCE
     Dosage: UNK, 1X/DAY
     Dates: start: 2015
  12. TRAMADOL. [Suspect]
     Active Substance: TRAMADOL
     Dosage: 50 MG, 3X/DAY
  13. FOLIC ACID. [Concomitant]
     Active Substance: FOLIC ACID
     Indication: ASTHENIA
     Dosage: UNK, 2X/DAY
     Dates: start: 2012
  14. LYRICA [Suspect]
     Active Substance: PREGABALIN
     Indication: RHEUMATOID ARTHRITIS
  15. LEVOTHYROXINE. [Concomitant]
     Active Substance: LEVOTHYROXINE
     Indication: BASEDOW^S DISEASE
     Dosage: 125 UG, 1X/DAY
  16. FISH OIL [Concomitant]
     Active Substance: FISH OIL
     Indication: BLOOD CHOLESTEROL
     Dosage: UNK, 2X/DAY
     Dates: start: 2012
  17. RAMIPRIL. [Concomitant]
     Active Substance: RAMIPRIL
     Indication: HYPERTENSION
     Dosage: 5 MG, 1X/DAY
     Dates: start: 1999
  18. VITAMIN D /00107901/ [Concomitant]
     Active Substance: ERGOCALCIFEROL
     Indication: VITAMIN D DECREASED
     Dosage: UNK, 1X/DAY
  19. HYDROCHLOROTHIAZIDE. [Concomitant]
     Active Substance: HYDROCHLOROTHIAZIDE
     Indication: HYPERTENSION
     Dosage: 25 MG, 1X/DAY
     Dates: start: 1997
  20. CRESTOR [Concomitant]
     Active Substance: ROSUVASTATIN CALCIUM
     Indication: BLOOD CHOLESTEROL
     Dosage: 10 MG, 1X/DAY AT BEDTIME
     Dates: start: 2015

REACTIONS (1)
  - Drug ineffective [Unknown]
